FAERS Safety Report 11323095 (Version 3)
Quarter: 2015Q4

REPORT INFORMATION
  Report Type: Report from Study
  Country: HU (occurrence: HU)
  Receive Date: 20150730
  Receipt Date: 20151001
  Transmission Date: 20160304
  Serious: Yes (Hospitalization)
  Sender: FDA-Public Use
  Company Number: HU-ROCHE-1613605

PATIENT
  Age: 65 Year
  Sex: Male
  Weight: 86 kg

DRUGS (46)
  1. PREDNISOLONE. [Concomitant]
     Active Substance: PREDNISOLONE
     Indication: PREMEDICATION
     Route: 065
     Dates: start: 20140109, end: 20140109
  2. PREDNISOLONE. [Concomitant]
     Active Substance: PREDNISOLONE
     Route: 065
     Dates: start: 20140306, end: 20140306
  3. PREDNISOLONE. [Concomitant]
     Active Substance: PREDNISOLONE
     Route: 065
     Dates: start: 20140505, end: 20140505
  4. PREDNISOLONE. [Concomitant]
     Active Substance: PREDNISOLONE
     Route: 065
     Dates: start: 20150108, end: 20150108
  5. PREDNISOLONE. [Concomitant]
     Active Substance: PREDNISOLONE
     Route: 065
     Dates: start: 20150430, end: 20150430
  6. PANADOL (HUNGARY) [Concomitant]
     Route: 065
     Dates: start: 20140505, end: 20140505
  7. SUPRASTIN [Concomitant]
     Active Substance: CHLOROPYRAMINE HYDROCHLORIDE
     Indication: PREMEDICATION
     Route: 065
     Dates: start: 20140109, end: 20140109
  8. PREDNISOLONE. [Concomitant]
     Active Substance: PREDNISOLONE
     Route: 065
     Dates: start: 20150305, end: 20150305
  9. PANADOL (HUNGARY) [Concomitant]
     Route: 065
     Dates: start: 20150529, end: 20150529
  10. PANADOL (HUNGARY) [Concomitant]
     Route: 065
     Dates: start: 20150430, end: 20150430
  11. SUPRASTIN [Concomitant]
     Active Substance: CHLOROPYRAMINE HYDROCHLORIDE
     Route: 065
     Dates: start: 20140724, end: 20140724
  12. SUPRASTIN [Concomitant]
     Active Substance: CHLOROPYRAMINE HYDROCHLORIDE
     Route: 065
     Dates: start: 20140326, end: 20140326
  13. PREDNISOLONE. [Concomitant]
     Active Substance: PREDNISOLONE
     Route: 065
     Dates: start: 20150529, end: 20150529
  14. PREDNISOLONE. [Concomitant]
     Active Substance: PREDNISOLONE
     Route: 065
     Dates: start: 20150625, end: 20150625
  15. PANADOL (HUNGARY) [Concomitant]
     Indication: PREMEDICATION
     Route: 065
     Dates: start: 20140109, end: 20140109
  16. PANADOL (HUNGARY) [Concomitant]
     Route: 065
     Dates: start: 20140326, end: 20140326
  17. SUPRASTIN [Concomitant]
     Active Substance: CHLOROPYRAMINE HYDROCHLORIDE
     Route: 065
     Dates: start: 20140505, end: 20140505
  18. RITUXIMAB [Suspect]
     Active Substance: RITUXIMAB
     Indication: B-CELL LYMPHOMA
     Dosage: MOST RECENT DOSE PRIOR TO SAE ON 25/JUN/2015
     Route: 058
     Dates: start: 20140206, end: 20150719
  19. PREDNISOLONE. [Concomitant]
     Active Substance: PREDNISOLONE
     Route: 065
     Dates: start: 20140724, end: 20140727
  20. SUPRASTIN [Concomitant]
     Active Substance: CHLOROPYRAMINE HYDROCHLORIDE
     Route: 065
     Dates: start: 20140206, end: 20140206
  21. SUPRASTIN [Concomitant]
     Active Substance: CHLOROPYRAMINE HYDROCHLORIDE
     Route: 065
     Dates: start: 20140918, end: 20140918
  22. SUPRASTIN [Concomitant]
     Active Substance: CHLOROPYRAMINE HYDROCHLORIDE
     Route: 065
     Dates: start: 20150108, end: 20150108
  23. PREDNISOLONE. [Concomitant]
     Active Substance: PREDNISOLONE
     Route: 065
     Dates: start: 20140403, end: 20140403
  24. PREDNISOLONE. [Concomitant]
     Active Substance: PREDNISOLONE
     Route: 065
     Dates: start: 20141117, end: 20141117
  25. PANADOL (HUNGARY) [Concomitant]
     Route: 065
     Dates: start: 20140306, end: 20140306
  26. PANADOL (HUNGARY) [Concomitant]
     Route: 065
     Dates: start: 20150625, end: 20150625
  27. RITUXIMAB [Suspect]
     Active Substance: RITUXIMAB
     Dosage: 6 CYCLES
     Route: 058
     Dates: start: 201407
  28. PANADOL (HUNGARY) [Concomitant]
     Route: 065
     Dates: start: 20140206, end: 20140206
  29. PANADOL (HUNGARY) [Concomitant]
     Route: 065
     Dates: start: 20140403, end: 20140403
  30. PANADOL (HUNGARY) [Concomitant]
     Route: 065
     Dates: start: 20141117, end: 20141117
  31. SUPRASTIN [Concomitant]
     Active Substance: CHLOROPYRAMINE HYDROCHLORIDE
     Route: 065
     Dates: start: 20140306, end: 20140306
  32. SUPRASTIN [Concomitant]
     Active Substance: CHLOROPYRAMINE HYDROCHLORIDE
     Route: 065
     Dates: start: 20150625, end: 20150625
  33. PREDNISOLONE. [Concomitant]
     Active Substance: PREDNISOLONE
     Route: 065
     Dates: start: 20140918, end: 20140918
  34. PREDNISOLONE. [Concomitant]
     Active Substance: PREDNISOLONE
     Route: 065
     Dates: start: 20140326, end: 20140326
  35. PANADOL (HUNGARY) [Concomitant]
     Route: 065
     Dates: start: 20140724, end: 20140724
  36. SUPRASTIN [Concomitant]
     Active Substance: CHLOROPYRAMINE HYDROCHLORIDE
     Route: 065
     Dates: start: 20140403, end: 20140403
  37. SUPRASTIN [Concomitant]
     Active Substance: CHLOROPYRAMINE HYDROCHLORIDE
     Route: 065
     Dates: start: 20150305, end: 20150305
  38. RITUXIMAB [Suspect]
     Active Substance: RITUXIMAB
     Indication: B-CELL LYMPHOMA
     Dosage: ONCE
     Route: 042
     Dates: start: 20140109, end: 20140109
  39. PREDNISOLONE. [Concomitant]
     Active Substance: PREDNISOLONE
     Route: 065
     Dates: start: 20140206, end: 20140206
  40. PREDNISOLONE. [Concomitant]
     Active Substance: PREDNISOLONE
     Dosage: 7 CYCLES RECEIVED
     Route: 042
     Dates: start: 20120612, end: 20121108
  41. PANADOL (HUNGARY) [Concomitant]
     Route: 065
     Dates: start: 20140918, end: 20140918
  42. PANADOL (HUNGARY) [Concomitant]
     Route: 065
     Dates: start: 20150108, end: 20150108
  43. PANADOL (HUNGARY) [Concomitant]
     Route: 065
     Dates: start: 20150305, end: 20150305
  44. SUPRASTIN [Concomitant]
     Active Substance: CHLOROPYRAMINE HYDROCHLORIDE
     Route: 065
     Dates: start: 20140529, end: 20140529
  45. SUPRASTIN [Concomitant]
     Active Substance: CHLOROPYRAMINE HYDROCHLORIDE
     Route: 065
     Dates: start: 20141117, end: 20141117
  46. SUPRASTIN [Concomitant]
     Active Substance: CHLOROPYRAMINE HYDROCHLORIDE
     Route: 065
     Dates: start: 20150430, end: 20150430

REACTIONS (1)
  - Progressive multifocal leukoencephalopathy [Not Recovered/Not Resolved]

NARRATIVE: CASE EVENT DATE: 20150715
